FAERS Safety Report 4676591-2 (Version None)
Quarter: 2005Q2

REPORT INFORMATION
  Report Type: 
  Country: None (occurrence: None)
  Receive Date: 20050527
  Receipt Date: 20050421
  Transmission Date: 20051028
  Serious: Yes (Hospitalization)
  Sender: FDA-Public Use
  Company Number: AU-ROCHE-402435

PATIENT
  Age: 50 Year
  Sex: Male
  Weight: 72.9 kg

DRUGS (4)
  1. PEGASYS [Suspect]
     Indication: DRUG USE FOR UNKNOWN INDICATION
     Route: 058
     Dates: start: 20040715
  2. PEGASYS [Suspect]
     Dosage: REDUCED DOSE.
     Route: 058
  3. PEGASYS [Suspect]
     Dosage: GIVEN WEEKLY.
     Route: 058
     Dates: end: 20041125
  4. RIBAVIRIN [Concomitant]
     Dosage: DAILY.
     Route: 048
     Dates: start: 20040715, end: 20041202

REACTIONS (3)
  - INFLAMMATION [None]
  - NECROTISING FASCIITIS [None]
  - NEUTROPENIA [None]
